FAERS Safety Report 14592266 (Version 2)
Quarter: 2018Q2

REPORT INFORMATION
  Report Type: Spontaneous
  Country: SE (occurrence: SE)
  Receive Date: 20180302
  Receipt Date: 20180611
  Transmission Date: 20180711
  Serious: Yes (Hospitalization)
  Sender: FDA-Public Use
  Company Number: SE-AUROBINDO-AUR-APL-2018-010481

PATIENT

DRUGS (5)
  1. AMANTADINE                         /00055902/ [Suspect]
     Active Substance: AMANTADINE
     Indication: PRODUCT USED FOR UNKNOWN INDICATION
     Dosage: UNK
     Dates: start: 201709
  2. LOFEPRAMINE                        /00514902/ [Concomitant]
  3. MODAFINIL. [Suspect]
     Active Substance: MODAFINIL
     Indication: PRODUCT USED FOR UNKNOWN INDICATION
     Dosage: UNK
     Dates: start: 201709
  4. GABAPENTIN. [Concomitant]
     Active Substance: GABAPENTIN
  5. OLANZAPINE. [Suspect]
     Active Substance: OLANZAPINE
     Indication: PRODUCT USED FOR UNKNOWN INDICATION
     Dosage: UNK
     Dates: start: 201709

REACTIONS (2)
  - Psychotic disorder [Unknown]
  - Drug eruption [Unknown]

NARRATIVE: CASE EVENT DATE: 201708
